FAERS Safety Report 9966509 (Version 2)
Quarter: 2014Q1

REPORT INFORMATION
  Report Type: Report from Study
  Country: US (occurrence: US)
  Receive Date: 20140305
  Receipt Date: 20140305
  Transmission Date: 20141002
  Serious: No
  Sender: FDA-Public Use
  Company Number: US-ABBVIE-13P-163-1095893-00

PATIENT
  Age: 28 Year
  Sex: Female

DRUGS (8)
  1. HUMIRA [Suspect]
     Indication: COLITIS ULCERATIVE
     Dates: start: 201211, end: 201211
  2. HUMIRA [Suspect]
     Dates: start: 201211, end: 201211
  3. HUMIRA [Suspect]
     Dates: end: 201301
  4. HUMIRA [Suspect]
     Dates: start: 201304
  5. LIALDA [Concomitant]
     Indication: PRODUCT USED FOR UNKNOWN INDICATION
  6. PREDNISONE [Concomitant]
     Indication: PRODUCT USED FOR UNKNOWN INDICATION
  7. ZOFRAN [Concomitant]
     Indication: PRODUCT USED FOR UNKNOWN INDICATION
  8. DICYCLOMINE HCL [Concomitant]
     Indication: PRODUCT USED FOR UNKNOWN INDICATION

REACTIONS (7)
  - Weight decreased [Unknown]
  - Anxiety [Not Recovered/Not Resolved]
  - Diarrhoea haemorrhagic [Unknown]
  - Vomiting [Unknown]
  - Colitis [Recovered/Resolved]
  - Wrong technique in drug usage process [Unknown]
  - Unevaluable event [Unknown]
